FAERS Safety Report 10146111 (Version 1)
Quarter: 2014Q2

REPORT INFORMATION
  Report Type: Spontaneous
  Country: US (occurrence: US)
  Receive Date: 20140501
  Receipt Date: 20140501
  Transmission Date: 20141212
  Serious: Yes (Hospitalization)
  Sender: FDA-Public Use
  Company Number: US-INCYTE CORPORATION-2014IN001148

PATIENT
  Age: 77 Year
  Sex: Male

DRUGS (4)
  1. JAKAFI [Suspect]
     Indication: MYELOFIBROSIS
     Dosage: 25 MG, QD (15 MG AM AND 10 MG PM)
     Route: 048
  2. LEVOTHYROXINE [Concomitant]
  3. TOPROL [Concomitant]
  4. FINASTERIDE [Concomitant]

REACTIONS (1)
  - Prostatic haemorrhage [Recovered/Resolved]
